FAERS Safety Report 10519119 (Version 2)
Quarter: 2015Q2

REPORT INFORMATION
  Report Type: Spontaneous
  Country: US (occurrence: US)
  Receive Date: 20141015
  Receipt Date: 20150407
  Transmission Date: 20150821
  Serious: Yes (Hospitalization)
  Sender: FDA-Public Use
  Company Number: US-BAYER-2014-151555

PATIENT
  Age: 23 Year
  Sex: Female
  Weight: 52.15 kg

DRUGS (1)
  1. MIRENA [Suspect]
     Active Substance: LEVONORGESTREL
     Indication: CONTRACEPTION
     Dosage: 20 MCG/24HR, CONT
     Route: 015
     Dates: start: 201111, end: 20131127

REACTIONS (15)
  - Uterine perforation [None]
  - Device breakage [None]
  - Device dislocation [None]
  - Anxiety [Not Recovered/Not Resolved]
  - Feeling abnormal [None]
  - Emotional distress [Not Recovered/Not Resolved]
  - Fear [Not Recovered/Not Resolved]
  - Gastrointestinal injury [None]
  - Pain [None]
  - Device issue [None]
  - Anger [Not Recovered/Not Resolved]
  - Device difficult to use [None]
  - Abdominal adhesions [None]
  - Injury [None]
  - Depression [Not Recovered/Not Resolved]

NARRATIVE: CASE EVENT DATE: 201311
